FAERS Safety Report 25879324 (Version 1)
Quarter: 2025Q4

REPORT INFORMATION
  Report Type: Spontaneous
  Country: US (occurrence: US)
  Receive Date: 20251003
  Receipt Date: 20251003
  Transmission Date: 20260118
  Serious: Yes (Other)
  Sender: RK PHARMA
  Company Number: US-RK PHARMA, INC-20250600077

PATIENT

DRUGS (4)
  1. MYCOPHENOLIC ACID [Suspect]
     Active Substance: MYCOPHENOLIC ACID
     Indication: Vogt-Koyanagi-Harada disease
     Dosage: UNK UNK, 6XD
     Route: 048
     Dates: end: 20250610
  2. BIOTIN [Concomitant]
     Active Substance: BIOTIN
  3. VITAMINS [Concomitant]
     Active Substance: VITAMINS
  4. VITAMIN C [Concomitant]
     Active Substance: ASCORBIC ACID

REACTIONS (4)
  - Abortion spontaneous [Recovered/Resolved]
  - Retained products of conception [Recovered/Resolved]
  - Abnormal uterine bleeding [Recovered/Resolved]
  - Maternal exposure during pregnancy [Recovered/Resolved]

NARRATIVE: CASE EVENT DATE: 20250601
